FAERS Safety Report 8587428-3 (Version None)
Quarter: 2012Q3

REPORT INFORMATION
  Report Type: 
  Country: None (occurrence: None)
  Receive Date: 20120810
  Receipt Date: 20111025
  Transmission Date: 20120928
  Serious: No
  Sender: FDA-Public Use
  Company Number: US-ASTRAZENECA-2011SE64864

PATIENT
  Age: 69 Year
  Sex: Female

DRUGS (2)
  1. ANASTROZOLE [Suspect]
     Route: 048
  2. ANASTROZOLE [Suspect]
     Dosage: GENERIC FORM
     Route: 048

REACTIONS (11)
  - COUGH [None]
  - HEADACHE [None]
  - PRURITUS [None]
  - DEPRESSION [None]
  - PAIN [None]
  - FLUID RETENTION [None]
  - INSOMNIA [None]
  - PRURITUS GENERALISED [None]
  - AXILLARY PAIN [None]
  - BREAST PAIN [None]
  - ALOPECIA [None]
